FAERS Safety Report 5058340-1 (Version None)
Quarter: 2006Q2

REPORT INFORMATION
  Report Type: 
  Country: None (occurrence: None)
  Receive Date: 20060626
  Receipt Date: 20060503
  Transmission Date: 20061013
  Serious: Yes (Other)
  Sender: FDA-Public Use
  Company Number: US-JNJFOC-20060501387

PATIENT
  Age: 3 Decade
  Sex: Male

DRUGS (1)
  1. ULTRAM [Suspect]
     Indication: HEADACHE
     Dosage: 100 MG, 1 IN 1 DAY, ORAL
     Route: 048
     Dates: start: 20060401

REACTIONS (1)
  - CONVULSION [None]
